FAERS Safety Report 5897627-7 (Version None)
Quarter: 2008Q3

REPORT INFORMATION
  Report Type: 
  Country: None (occurrence: None)
  Receive Date: 20080925
  Receipt Date: 20080915
  Transmission Date: 20090109
  Serious: Yes (Other)
  Sender: FDA-Public Use
  Company Number: US-AMGEN-US232368

PATIENT
  Sex: Female
  Weight: 98.5 kg

DRUGS (4)
  1. ENBREL [Suspect]
     Indication: RHEUMATOID ARTHRITIS
     Route: 058
     Dates: start: 20051001
  2. PROZAC [Concomitant]
     Route: 048
  3. IBUPROFEN [Concomitant]
     Route: 048
  4. METHOTREXATE [Concomitant]

REACTIONS (30)
  - ARTERIAL INJURY [None]
  - ARTHRALGIA [None]
  - BACK PAIN [None]
  - COMPLICATION OF PREGNANCY [None]
  - CONGENITAL ANOMALY IN OFFSPRING [None]
  - CONTRACEPTION [None]
  - COUGH [None]
  - DISEASE PROGRESSION [None]
  - DIZZINESS [None]
  - DRUG EXPOSURE DURING PREGNANCY [None]
  - FATIGUE [None]
  - FEELING COLD [None]
  - GASTRIC DISORDER [None]
  - INCREASED TENDENCY TO BRUISE [None]
  - INJECTION SITE HAEMATOMA [None]
  - INJECTION SITE REACTION [None]
  - MUSCULOSKELETAL STIFFNESS [None]
  - NASOPHARYNGITIS [None]
  - OROPHARYNGEAL PAIN [None]
  - PAIN [None]
  - POST PROCEDURAL HAEMORRHAGE [None]
  - PRECANCEROUS CELLS PRESENT [None]
  - PREGNANCY ON CONTRACEPTIVE [None]
  - PREMATURE LABOUR [None]
  - PROCEDURAL COMPLICATION [None]
  - RHEUMATOID ARTHRITIS [None]
  - SMEAR CERVIX ABNORMAL [None]
  - STOMACH DISCOMFORT [None]
  - THERAPEUTIC RESPONSE DECREASED [None]
  - VOMITING [None]
